FAERS Safety Report 7302367-3 (Version None)
Quarter: 2011Q1

REPORT INFORMATION
  Report Type: 
  Country: None (occurrence: None)
  Receive Date: 20110218
  Receipt Date: 20110209
  Transmission Date: 20110831
  Serious: Yes (Other)
  Sender: FDA-Public Use
  Company Number: US-CEPHALON-2011000661

PATIENT
  Sex: Female

DRUGS (4)
  1. CRESTOR [Concomitant]
  2. FENTORA [Suspect]
     Indication: BREAKTHROUGH PAIN
     Route: 002
     Dates: start: 20091001
  3. OXYCONTIN [Concomitant]
     Dates: start: 20100101
  4. LISINOPRIL AND HYDROCHLOROTHIAZIDE [Concomitant]

REACTIONS (1)
  - TOOTH LOSS [None]
